FAERS Safety Report 24361272 (Version 1)
Quarter: 2024Q3

REPORT INFORMATION
  Report Type: Spontaneous
  Country: US (occurrence: US)
  Receive Date: 20240925
  Receipt Date: 20240925
  Transmission Date: 20241016
  Serious: Yes (Death, Other)
  Sender: CELLTRION
  Company Number: US-CELLTRION INC.-2023US017737

PATIENT

DRUGS (1)
  1. INFLECTRA [Suspect]
     Active Substance: INFLIXIMAB-DYYB
     Indication: Colitis ulcerative
     Dosage: DOSE UNKNOWN, GIVEN BY INFUSION, FREQUENCY UNKNOWN
     Route: 065

REACTIONS (2)
  - Cardiac failure congestive [Fatal]
  - Heart rate decreased [Fatal]
